FAERS Safety Report 6152344-3 (Version None)
Quarter: 2009Q2

REPORT INFORMATION
  Report Type: 
  Country: None (occurrence: None)
  Receive Date: 20090409
  Receipt Date: 20090324
  Transmission Date: 20091009
  Serious: Yes (Other)
  Sender: FDA-Public Use
  Company Number: 8044274

PATIENT
  Age: 55 Year
  Sex: Male
  Weight: 107.27 kg

DRUGS (24)
  1. HYDROCODONE BITARTRATE AND ACETAMINOPHEN [Suspect]
     Indication: PAIN
     Dosage: 1 DF PRN PO
     Route: 048
  2. FENTANYL [Suspect]
     Indication: PAIN
     Dosage: 50 MCG TRD
     Route: 062
     Dates: start: 20090317
  3. AMBIEN [Concomitant]
  4. ASPIRIN [Concomitant]
  5. CELEBREX [Concomitant]
  6. ENBREL [Concomitant]
  7. FOSAMAX [Concomitant]
  8. HUMULIN N [Concomitant]
  9. IPRATRAPRIUM [Concomitant]
  10. LASIX [Concomitant]
  11. LIPITOR [Concomitant]
  12. ANTIVERT [Concomitant]
  13. MONOPRIL [Concomitant]
  14. NASAREL [Concomitant]
  15. NEXIUM [Concomitant]
  16. NORVASC [Concomitant]
  17. PHENERGAN [Concomitant]
  18. PLAVIX [Concomitant]
  19. POTASSIUM CHLORIDE [Concomitant]
  20. RESTASIS [Concomitant]
  21. MAXIDEX [Concomitant]
  22. WELLBUTRIN XL [Concomitant]
  23. XANAX [Concomitant]
  24. ZOLOFT [Concomitant]

REACTIONS (4)
  - BLOOD PRESSURE DECREASED [None]
  - HEART RATE DECREASED [None]
  - HYPERSOMNIA [None]
  - SLEEP APNOEA SYNDROME [None]
